FAERS Safety Report 5887712-8 (Version None)
Quarter: 2008Q3

REPORT INFORMATION
  Report Type: 
  Country: None (occurrence: None)
  Receive Date: 20080916
  Receipt Date: 20080909
  Transmission Date: 20090109
  Serious: Yes (Other)
  Sender: FDA-Public Use
  Company Number: PTA2008000003

PATIENT
  Age: 51 Year
  Sex: Female
  Weight: 81.6 kg

DRUGS (6)
  1. EPHEDRINE SULFATE USP (EPHEDRINE SULFATE) INJECTION, 50MG/ML [Suspect]
     Indication: HYPOTENSION
     Dosage: 5 MG, X4-5, INTRAVENOUS, 25 MG, INTRAVENOUS
     Route: 042
  2. DIOVAN [Concomitant]
  3. CARDIZEM/ /0048979/ (DILTIAZEM) [Concomitant]
  4. SEVOFLURANE [Concomitant]
  5. HYDROMORPHONE HCL [Concomitant]
  6. FENTANYL-100 [Concomitant]

REACTIONS (1)
  - DRUG INEFFECTIVE [None]
